FAERS Safety Report 8918396 (Version 1)
Quarter: 2012Q4

REPORT INFORMATION
  Report Type: 
  Country: US (occurrence: US)
  Receive Date: 20121120
  Receipt Date: 20121120
  Transmission Date: 20130627
  Serious: No
  Sender: FDA-Public Use
  Company Number: US-ASTRAZENECA-2012SE17263

PATIENT
  Age: 81 Year
  Sex: Male
  Weight: 58.1 kg

DRUGS (20)
  1. NEXIUM [Suspect]
     Indication: GASTRITIS PROPHYLAXIS
     Route: 048
     Dates: start: 2006
  2. VIT [Concomitant]
  3. SANCTURA XR [Concomitant]
  4. ANDRODERM [Concomitant]
  5. HYDROCODONE [Concomitant]
  6. LACTAID [Concomitant]
  7. RECLASE IV [Concomitant]
  8. QYEAR [Concomitant]
  9. PROZAC [Concomitant]
  10. ASPIRIN [Concomitant]
  11. PREDNISONE [Concomitant]
  12. LASIX [Concomitant]
  13. PATASSIUM [Concomitant]
  14. FENTANYL PATCH [Concomitant]
  15. XOPENEX [Concomitant]
  16. SPIRIVA [Concomitant]
  17. CALCIUM [Concomitant]
  18. VIT D [Concomitant]
  19. MIRALAX [Concomitant]
  20. COLACE [Concomitant]

REACTIONS (2)
  - Gastrooesophageal reflux disease [Unknown]
  - Drug prescribing error [Unknown]
